FAERS Safety Report 19610477 (Version 1)
Quarter: 2021Q3

REPORT INFORMATION
  Report Type: Spontaneous
  Country: AU (occurrence: AU)
  Receive Date: 20210726
  Receipt Date: 20210726
  Transmission Date: 20211014
  Serious: No
  Sender: FDA-Public Use
  Company Number: AU-LUPIN PHARMACEUTICALS INC.-2021-11993

PATIENT
  Sex: Female

DRUGS (1)
  1. EVELYN TABLET [Suspect]
     Active Substance: ETHINYL ESTRADIOL\LEVONORGESTREL
     Indication: PRODUCT USED FOR UNKNOWN INDICATION
     Dosage: UNK (ONE TABLET FROM ONE BOX (ACTIVE PILL))
     Route: 065

REACTIONS (1)
  - Vaginal haemorrhage [Recovered/Resolved]
